FAERS Safety Report 12381350 (Version 1)
Quarter: 2016Q2

REPORT INFORMATION
  Report Type: Spontaneous
  Country: IT (occurrence: IT)
  Receive Date: 20160518
  Receipt Date: 20160518
  Transmission Date: 20160815
  Serious: Yes (Other)
  Sender: FDA-Public Use
  Company Number: IT-SA-2016SA092002

PATIENT
  Age: 73 Year
  Sex: Female

DRUGS (5)
  1. COUMADIN [Concomitant]
     Active Substance: WARFARIN SODIUM
     Dosage: DIVISIBLE TABLETS
  2. CRESTOR [Concomitant]
     Active Substance: ROSUVASTATIN CALCIUM
  3. MULTAQ [Suspect]
     Active Substance: DRONEDARONE
     Route: 048
     Dates: start: 20160404, end: 20160417
  4. PLAUNAC [Concomitant]
     Active Substance: OLMESARTAN MEDOXOMIL
  5. ALMARYTM [Concomitant]
     Active Substance: FLECAINIDE ACETATE

REACTIONS (5)
  - Tongue geographic [Unknown]
  - Hypersensitivity [Unknown]
  - Papule [Unknown]
  - Photosensitivity reaction [Unknown]
  - Pruritus generalised [Unknown]

NARRATIVE: CASE EVENT DATE: 20160410
